FAERS Safety Report 12955428 (Version 1)
Quarter: 2016Q4

REPORT INFORMATION
  Report Type: Spontaneous
  Country: US (occurrence: US)
  Receive Date: 20161118
  Receipt Date: 20161118
  Transmission Date: 20170207
  Serious: No
  Sender: FDA-Public Use
  Company Number: US-PERRIGO-16US017018

PATIENT
  Age: 53 Year
  Sex: Female
  Weight: 53.52 kg

DRUGS (2)
  1. POLYETHYLENE GLYCOL 3350. [Suspect]
     Active Substance: POLYETHYLENE GLYCOL 3350
     Indication: CONSTIPATION
     Dosage: 25.5 G, QD
     Route: 048
     Dates: end: 201605
  2. POLYETHYLENE GLYCOL 3350. [Suspect]
     Active Substance: POLYETHYLENE GLYCOL 3350
     Dosage: 25.5 G, QD
     Route: 048
     Dates: start: 201605, end: 20160608

REACTIONS (5)
  - Throat irritation [Recovered/Resolved]
  - Oropharyngeal pain [Not Recovered/Not Resolved]
  - Dyspepsia [Recovered/Resolved]
  - Incorrect dose administered [Recovered/Resolved]
  - Incorrect drug administration duration [Recovered/Resolved]

NARRATIVE: CASE EVENT DATE: 20160608
